FAERS Safety Report 18747572 (Version 1)
Quarter: 2021Q1

REPORT INFORMATION
  Report Type: Report from Study
  Country: AU (occurrence: AU)
  Receive Date: 20210115
  Receipt Date: 20210115
  Transmission Date: 20210419
  Serious: Yes (Other)
  Sender: FDA-Public Use
  Company Number: AU-EMD SERONO-9168133

PATIENT
  Age: 42 Year
  Sex: Female

DRUGS (2)
  1. MAVENCLAD [Suspect]
     Active Substance: CLADRIBINE
     Dosage: YEAR ONE WEEK FIVE TREATMENT (DOSING BASED ON 60 TO 70 KG WEIGHT RANGE)
     Dates: start: 20200405, end: 20200409
  2. MAVENCLAD [Suspect]
     Active Substance: CLADRIBINE
     Indication: MULTIPLE SCLEROSIS
     Dosage: YEAR ONE WEEK ONE TREATMENT (DOSING BASED ON 60 TO 70 KG WEIGHT RANGE)
     Dates: start: 20200308, end: 20200312

REACTIONS (11)
  - Coeliac disease [Unknown]
  - Weight decreased [Not Recovered/Not Resolved]
  - Antinuclear antibody increased [Recovered/Resolved]
  - General physical health deterioration [Unknown]
  - Optic neuritis [Not Recovered/Not Resolved]
  - Lymphocyte count decreased [Recovering/Resolving]
  - Multiple sclerosis [Not Recovered/Not Resolved]
  - Headache [Unknown]
  - Peroneal nerve palsy [Not Recovered/Not Resolved]
  - Cystitis noninfective [Unknown]
  - Urinary tract infection [Recovered/Resolved]

NARRATIVE: CASE EVENT DATE: 2020
